FAERS Safety Report 23533111 (Version 2)
Quarter: 2024Q1

REPORT INFORMATION
  Report Type: Spontaneous
  Country: RO (occurrence: RO)
  Receive Date: 20240216
  Receipt Date: 20240227
  Transmission Date: 20240410
  Serious: Yes (Hospitalization, Other)
  Sender: FDA-Public Use
  Company Number: RO-GLAXOSMITHKLINE-RO2024EME020097

PATIENT

DRUGS (1)
  1. VENTOLIN [Suspect]
     Active Substance: ALBUTEROL SULFATE
     Indication: Asthma
     Dosage: 1 PUFF(S) (EACH EPISODE OF COUGH/ VIAL WITHIN 14 HOURS)
     Route: 055

REACTIONS (22)
  - Toxicity to various agents [Recovering/Resolving]
  - Overdose [Unknown]
  - Asthmatic crisis [Recovering/Resolving]
  - Self-medication [Unknown]
  - General physical health deterioration [Recovering/Resolving]
  - Psychomotor hyperactivity [Recovering/Resolving]
  - Chest pain [Recovering/Resolving]
  - Tachycardia [Recovering/Resolving]
  - Tachypnoea [Recovering/Resolving]
  - Dyspnoea [Recovering/Resolving]
  - Polyuria [Recovered/Resolved]
  - Wheezing [Recovering/Resolving]
  - Rales [Recovering/Resolving]
  - Cough [Recovering/Resolving]
  - Respiratory disorder [Recovering/Resolving]
  - Dyspnoea [Recovering/Resolving]
  - Asthma [Recovering/Resolving]
  - Breath sounds [Recovering/Resolving]
  - Hypertension [Recovering/Resolving]
  - Acidosis [Recovering/Resolving]
  - Hyperglycaemia [Recovering/Resolving]
  - Hypokalaemia [Recovering/Resolving]
